FAERS Safety Report 18100638 (Version 2)
Quarter: 2020Q3

REPORT INFORMATION
  Report Type: Spontaneous
  Country: US (occurrence: US)
  Receive Date: 20200731
  Receipt Date: 20200831
  Transmission Date: 20201103
  Serious: No
  Sender: FDA-Public Use
  Company Number: US-BAUSCH-BL-2020-021600

PATIENT
  Age: 38 Year
  Sex: Male
  Weight: 95.34 kg

DRUGS (2)
  1. LAMICTAL [Concomitant]
     Active Substance: LAMOTRIGINE
     Indication: BIPOLAR DISORDER
  2. WELLBUTRIN XL [Suspect]
     Active Substance: BUPROPION HYDROCHLORIDE
     Indication: DEPRESSION
     Route: 048
     Dates: start: 2000, end: 2005

REACTIONS (4)
  - Drug ineffective [Unknown]
  - Inability to afford medication [Unknown]
  - No adverse event [Unknown]
  - Insurance issue [Unknown]
